FAERS Safety Report 8728331 (Version 2)
Quarter: 2012Q4

REPORT INFORMATION
  Report Type: 
  Country: US (occurrence: US)
  Receive Date: 20120817
  Receipt Date: 20121015
  Transmission Date: 20130627
  Serious: Yes (Death, Hospitalization)
  Sender: FDA-Public Use
  Company Number: US-ELI_LILLY_AND_COMPANY-US201208003377

PATIENT
  Age: 88 Year
  Sex: Male

DRUGS (3)
  1. HUMALOG LISPRO [Suspect]
     Indication: DIABETES MELLITUS
     Dosage: UNK
     Dates: start: 1992
  2. INSULIN [Concomitant]
  3. LANTUS [Concomitant]

REACTIONS (4)
  - Pneumonia [Fatal]
  - Coronary artery bypass [Unknown]
  - Blood glucose increased [Unknown]
  - Gangrene [Unknown]
